FAERS Safety Report 5321062-3 (Version None)
Quarter: 2007Q2

REPORT INFORMATION
  Report Type: 
  Country: None (occurrence: None)
  Receive Date: 20070510
  Receipt Date: 20070118
  Transmission Date: 20071010
  Serious: Yes (Death, Life-Threatening)
  Sender: FDA-Public Use
  Company Number: GB-NOVOPROD-259213

PATIENT
  Age: 37 Year
  Sex: Male

DRUGS (3)
  1. NORDITROPIN SIMPLEXX [Suspect]
     Indication: DRUG USE FOR UNKNOWN INDICATION
     Dosage: .3 MG, QD
     Route: 058
     Dates: start: 20050628, end: 20060415
  2. DEXAMETHASON                       /00016001/ [Concomitant]
     Dosage: 2 MG, QD
     Route: 048
     Dates: start: 20060531
  3. TEGRETOL [Concomitant]
     Dosage: 800 MG, QD
     Route: 048
     Dates: start: 20060410

REACTIONS (1)
  - ADENOCARCINOMA [None]
